FAERS Safety Report 11825433 (Version 1)
Quarter: 2015Q4

REPORT INFORMATION
  Report Type: Spontaneous
  Country: US (occurrence: None)
  Receive Date: 20151210
  Receipt Date: 20151210
  Transmission Date: 20160305
  Serious: Yes (Hospitalization)
  Sender: FDA-Public Use
  Company Number: None

PATIENT
  Age: 63 Year
  Sex: Male
  Weight: 67 kg

DRUGS (5)
  1. RITUXIMAB (MOAB C2B8 ANTI CD20, CHIMERIC) [Suspect]
     Active Substance: RITUXIMAB
     Dosage: A TOTAL OF 4 CYCLESL, D1 AND D15 OF INDUCTION THERAPY GIVEN PRIOR TO SAE EVENT
     Dates: end: 20150818
  2. VINCRISTINE SULFATE. [Suspect]
     Active Substance: VINCRISTINE SULFATE
     Dosage: INDUCTION THERAPRY 4 CYCLES OF D1 AND D15 THERAPY COMPLETED PRIOR TO ONSET OF THE REPORTED SAE
  3. CYTARABINE. [Suspect]
     Active Substance: CYTARABINE
     Dates: end: 20151104
  4. PROCARBAZINE [Suspect]
     Active Substance: PROCARBAZINE
     Dosage: INDUCTION THERAPY 4 CYCLES OF D1 AND D15 ?THERAPY COMPLETED PRIOR TO ONSET OF THE REPORTED SAE
     Dates: end: 20150811
  5. METHOTREXATE [Suspect]
     Active Substance: METHOTREXATE
     Dosage: INDUCTION THERAPY 4 CYCLES OF D1 AND D15 COMPLETED PRIOR TO ONSET OF THE REPORRTED SAE
     Dates: end: 20150819

REACTIONS (2)
  - White blood cell count decreased [None]
  - Neutrophil count decreased [None]

NARRATIVE: CASE EVENT DATE: 20151110
